FAERS Safety Report 8571235-1 (Version None)
Quarter: 2012Q3

REPORT INFORMATION
  Report Type: 
  Country: None (occurrence: None)
  Receive Date: 20120730
  Receipt Date: 20120730
  Transmission Date: 20120928
  Serious: No
  Sender: FDA-Public Use
  Company Number: None

PATIENT
  Age: 38 Year
  Sex: Female
  Weight: 74.7 kg

DRUGS (1)
  1. FERUMOXYTOL [Suspect]
     Indication: IRON DEFICIENCY ANAEMIA
     Dosage: 510 ML ONCE IV
     Route: 042
     Dates: start: 20120705, end: 20120705

REACTIONS (5)
  - PAIN [None]
  - CHEST DISCOMFORT [None]
  - HEADACHE [None]
  - DYSPNOEA [None]
  - PARAESTHESIA [None]
